FAERS Safety Report 15084788 (Version 3)
Quarter: 2018Q3

REPORT INFORMATION
  Report Type: Other
  Country: CN (occurrence: CN)
  Receive Date: 20180628
  Receipt Date: 20180706
  Transmission Date: 20181010
  Serious: Yes (Hospitalization, Other)
  Sender: FDA-Public Use
  Company Number: CN-ACTELION-A-US2018-174471

PATIENT
  Age: 39 Year
  Sex: Female

DRUGS (6)
  1. SILDENAFIL. [Suspect]
     Active Substance: SILDENAFIL
     Indication: PULMONARY ARTERIAL HYPERTENSION
     Dosage: 37.5 MG, QD
     Route: 048
  2. NADROPARIN CALCIUM [Concomitant]
     Active Substance: NADROPARIN CALCIUM
  3. ROPIVACAINE [Concomitant]
     Active Substance: ROPIVACAINE
     Dosage: 0.375 %, UNK
  4. SILDENAFIL. [Suspect]
     Active Substance: SILDENAFIL
     Dosage: 75 MG, QD
     Route: 048
  5. VENTAVIS [Suspect]
     Active Substance: ILOPROST
     Indication: PULMONARY ARTERIAL HYPERTENSION
     Dosage: 20MCG/ML
     Route: 055
  6. LIDOCAINE. [Concomitant]
     Active Substance: LIDOCAINE
     Dosage: 2 %, UNK

REACTIONS (3)
  - Pregnancy [Unknown]
  - Procedural hypotension [Unknown]
  - Abortion induced [Unknown]
